FAERS Safety Report 14330621 (Version 2)
Quarter: 2018Q1

REPORT INFORMATION
  Report Type: Spontaneous
  Country: US (occurrence: US)
  Receive Date: 20171227
  Receipt Date: 20180116
  Transmission Date: 20180509
  Serious: Yes (Life-Threatening, Other)
  Sender: FDA-Public Use
  Company Number: US-AMGEN-USASP2017189961

PATIENT
  Sex: Female
  Weight: 55.78 kg

DRUGS (4)
  1. ENBREL [Suspect]
     Active Substance: ETANERCEPT
     Indication: RHEUMATOID ARTHRITIS
     Dosage: UNK UNK, QWK
     Route: 058
     Dates: start: 2009
  2. SYNTHROID [Concomitant]
     Active Substance: LEVOTHYROXINE SODIUM
     Dosage: UNK
  3. RECLAST [Concomitant]
     Active Substance: ZOLEDRONIC ACID
     Indication: OSTEOPOROSIS
     Dosage: 5 MG, YEARLY
  4. ENBREL [Suspect]
     Active Substance: ETANERCEPT
     Dosage: 25 MG, 2-3/WEEK
     Route: 058
     Dates: end: 20171220

REACTIONS (5)
  - Off label use [Unknown]
  - Interstitial lung disease [Unknown]
  - Drug intolerance [Unknown]
  - Lung adenocarcinoma [Not Recovered/Not Resolved]
  - Pulmonary nodular lymphoid hyperplasia [Unknown]

NARRATIVE: CASE EVENT DATE: 2017
